FAERS Safety Report 6080540-2 (Version None)
Quarter: 2009Q1

REPORT INFORMATION
  Report Type: 
  Country: None (occurrence: None)
  Receive Date: 20090217
  Receipt Date: 20090206
  Transmission Date: 20090719
  Serious: Yes (Other)
  Sender: FDA-Public Use
  Company Number: A0768742A

PATIENT
  Age: 42 Year
  Sex: Male
  Weight: 32.7 kg

DRUGS (3)
  1. AVANDIA [Suspect]
     Dosage: 8MG PER DAY
     Route: 065
     Dates: start: 20020216, end: 20070519
  2. METFORMIN HCL [Concomitant]
     Dates: start: 20020201
  3. AMARYL [Concomitant]
     Dates: start: 20020201

REACTIONS (2)
  - BLOOD CHOLESTEROL INCREASED [None]
  - CEREBROVASCULAR ACCIDENT [None]
